FAERS Safety Report 20019534 (Version 1)
Quarter: 2021Q4

REPORT INFORMATION
  Report Type: Spontaneous
  Country: CN (occurrence: CN)
  Receive Date: 20211101
  Receipt Date: 20211101
  Transmission Date: 20220304
  Serious: Yes (Other)
  Sender: FDA-Public Use
  Company Number: CN-GLAXOSMITHKLINE-CN2021APC222851

PATIENT
  Age: 21 Year
  Sex: Female
  Weight: 95 kg

DRUGS (2)
  1. MUPIROCIN [Suspect]
     Active Substance: MUPIROCIN
     Indication: Localised infection
     Dosage: 0.2 G, QD
     Route: 061
     Dates: start: 20211025, end: 20211025
  2. MUPIROCIN [Suspect]
     Active Substance: MUPIROCIN
     Indication: Carbuncle

REACTIONS (8)
  - Pharyngeal stenosis [Recovering/Resolving]
  - Dizziness [Recovering/Resolving]
  - Pruritus [Recovering/Resolving]
  - Peripheral swelling [Recovering/Resolving]
  - Erythema [Recovering/Resolving]
  - Palpitations [Recovering/Resolving]
  - Chest discomfort [Recovering/Resolving]
  - Discomfort [Recovering/Resolving]

NARRATIVE: CASE EVENT DATE: 20211025
